FAERS Safety Report 22074433 (Version 1)
Quarter: 2023Q1

REPORT INFORMATION
  Report Type: Spontaneous
  Country: US (occurrence: US)
  Receive Date: 20230308
  Receipt Date: 20230308
  Transmission Date: 20230417
  Serious: No
  Sender: FDA-Public Use
  Company Number: US-Calliditas-2023CAL00208

PATIENT
  Age: 59 Year
  Sex: Male
  Weight: 193 kg

DRUGS (1)
  1. TARPEYO [Suspect]
     Active Substance: BUDESONIDE
     Indication: IgA nephropathy
     Dosage: 16 MG (4 MG CAPSULES) ONCE DAILY
     Route: 048
     Dates: start: 20230221

REACTIONS (5)
  - Abdominal distension [Unknown]
  - Constipation [Unknown]
  - Dyspnoea [Unknown]
  - Blood pressure increased [Unknown]
  - Fatigue [Unknown]
